FAERS Safety Report 21159706 (Version 1)
Quarter: 2022Q3

REPORT INFORMATION
  Report Type: Spontaneous
  Country: US (occurrence: None)
  Receive Date: 20220801
  Receipt Date: 20220801
  Transmission Date: 20221026
  Serious: No
  Sender: FDA-Public Use
  Company Number: None

PATIENT
  Age: 80 Year
  Sex: Male

DRUGS (17)
  1. IMATINIB MESYLATE [Suspect]
     Active Substance: IMATINIB MESYLATE
     Indication: Chronic myeloid leukaemia
     Dosage: FREQUENCY : DAILY;?
     Route: 048
     Dates: start: 201802
  2. ACETAMINOPHEN [Concomitant]
     Active Substance: ACETAMINOPHEN
  3. ASPIRIN [Concomitant]
     Active Substance: ASPIRIN
  4. CARAFATE [Concomitant]
     Active Substance: SUCRALFATE
  5. CLOPIDOGREL BISULFATE [Concomitant]
     Active Substance: CLOPIDOGREL BISULFATE
  6. GLIMEPIRIDE [Concomitant]
     Active Substance: GLIMEPIRIDE
  7. LASIX LEVOTHYROXINE SODIUM [Concomitant]
  8. LOPERAMIDE HYDROCHLORIDE [Concomitant]
     Active Substance: LOPERAMIDE HYDROCHLORIDE
  9. NITROSTAT [Concomitant]
     Active Substance: NITROGLYCERIN
  10. ONDANSETRON HYDROCHLORIDE [Concomitant]
     Active Substance: ONDANSETRON HYDROCHLORIDE
  11. MINERALS\VITAMINS [Concomitant]
     Active Substance: MINERALS\VITAMINS
  12. SIMVASTATIN [Concomitant]
     Active Substance: SIMVASTATIN
  13. SOTALOL HCI [Concomitant]
  14. TRADJENTA [Concomitant]
     Active Substance: LINAGLIPTIN
  15. VITAMIN D3 [Concomitant]
     Active Substance: CHOLECALCIFEROL
  16. VOLTAREN [Concomitant]
     Active Substance: DICLOFENAC SODIUM
  17. XARELTO [Concomitant]
     Active Substance: RIVAROXABAN

REACTIONS (6)
  - Philadelphia chromosome positive [None]
  - Weight decreased [None]
  - Asthenia [None]
  - Drug intolerance [None]
  - Diarrhoea [None]
  - Nausea [None]
